FAERS Safety Report 13941877 (Version 1)
Quarter: 2017Q3

REPORT INFORMATION
  Report Type: Spontaneous
  Country: US (occurrence: US)
  Receive Date: 20170906
  Receipt Date: 20170906
  Transmission Date: 20171127
  Serious: No
  Sender: FDA-Public Use
  Company Number: US-009507513-1709USA002113

PATIENT
  Sex: Female

DRUGS (1)
  1. BELSOMRA [Suspect]
     Active Substance: SUVOREXANT
     Indication: SLEEP DISORDER
     Dosage: EVERY 3 OR 4 NIGHTS
     Route: 048

REACTIONS (3)
  - Hypoaesthesia [Unknown]
  - Myalgia [Unknown]
  - Muscle rigidity [Unknown]
